FAERS Safety Report 13197698 (Version 1)
Quarter: 2017Q1

REPORT INFORMATION
  Report Type: Spontaneous
  Country: DE (occurrence: DE)
  Receive Date: 20170208
  Receipt Date: 20170208
  Transmission Date: 20170428
  Serious: Yes (Other)
  Sender: FDA-Public Use
  Company Number: DE-WEST-WARD PHARMACEUTICALS CORP.-DE-H14001-16-02918

PATIENT
  Age: 53 Year
  Sex: Female

DRUGS (2)
  1. CEFTAZIDIM [Suspect]
     Active Substance: CEFTAZIDIME
     Indication: PERITONITIS
     Route: 033
  2. CEFAZOLIN [Suspect]
     Active Substance: CEFAZOLIN
     Indication: PERITONITIS
     Route: 033

REACTIONS (2)
  - Noninfectious peritonitis [Recovered/Resolved]
  - Drug hypersensitivity [Recovered/Resolved]
